FAERS Safety Report 8652334 (Version 3)
Quarter: 2012Q4

REPORT INFORMATION
  Report Type: 
  Country: US (occurrence: US)
  Receive Date: 20120706
  Receipt Date: 20120920
  Transmission Date: 20130627
  Serious: Yes (Other)
  Sender: FDA-Public Use
  Company Number: US-PFIZER INC-2012160362

PATIENT
  Age: 61 Year
  Sex: Female
  Weight: 54.4 kg

DRUGS (4)
  1. CELEBREX [Suspect]
     Indication: ARTHRITIS
     Dosage: 200 mg, 1 1x/day
     Route: 048
     Dates: start: 20120523, end: 20120525
  2. CELEBREX [Suspect]
     Indication: OSTEOARTHRITIS
  3. AMBIEN [Concomitant]
     Indication: INSOMNIA
     Dosage: 10 mg, qhs
     Route: 048
  4. AMBIEN [Concomitant]
     Indication: SLEEP DISORDER

REACTIONS (2)
  - Pneumonia [Recovered/Resolved]
  - Upper respiratory tract infection [Recovered/Resolved]
